FAERS Safety Report 23814049 (Version 4)
Quarter: 2024Q3

REPORT INFORMATION
  Report Type: Spontaneous
  Country: US (occurrence: US)
  Receive Date: 20240503
  Receipt Date: 20240709
  Transmission Date: 20241017
  Serious: No
  Sender: BLUEPRINT MEDICINES
  Company Number: US-Blueprint Medicines Corporation-3296

PATIENT
  Sex: Male

DRUGS (2)
  1. AYVAKIT [Suspect]
     Active Substance: AVAPRITINIB
     Indication: Systemic mastocytosis
     Route: 048
     Dates: start: 20240423
  2. AYVAKIT [Suspect]
     Active Substance: AVAPRITINIB
     Indication: Indolent systemic mastocytosis
     Route: 065
     Dates: start: 20240423

REACTIONS (8)
  - Blood glucose increased [Unknown]
  - Feeling abnormal [Unknown]
  - Rash macular [Unknown]
  - Eye swelling [Unknown]
  - Peripheral swelling [Unknown]
  - Limb mass [Unknown]
  - Rash pruritic [Unknown]
  - Skin haemorrhage [Unknown]
